FAERS Safety Report 7818137-3 (Version None)
Quarter: 2011Q4

REPORT INFORMATION
  Report Type: 
  Country: None (occurrence: None)
  Receive Date: 20111017
  Receipt Date: 20111010
  Transmission Date: 20120403
  Serious: Yes (Other)
  Sender: FDA-Public Use
  Company Number: MX-SANOFI-AVENTIS-2011SA066456

PATIENT
  Age: 55 Year
  Sex: Male
  Weight: 66 kg

DRUGS (3)
  1. LANTUS [Suspect]
     Dosage: 60 IU/24 HOURS
     Dates: start: 20100101, end: 20111003
  2. LANTUS [Suspect]
     Indication: TYPE 2 DIABETES MELLITUS
     Dates: start: 20080101, end: 20100101
  3. LANTUS [Suspect]
     Route: 058
     Dates: start: 20111003

REACTIONS (2)
  - HYPERGLYCAEMIA [None]
  - RENAL FAILURE [None]
